FAERS Safety Report 4659565-7 (Version None)
Quarter: 2005Q2

REPORT INFORMATION
  Report Type: 
  Country: None (occurrence: None)
  Receive Date: 20050510
  Receipt Date: 20050428
  Transmission Date: 20051028
  Serious: Yes (Death)
  Sender: FDA-Public Use
  Company Number: 2005067542

PATIENT
  Sex: 0

DRUGS (1)
  1. VIAGRA [Suspect]
     Indication: ILL-DEFINED DISORDER
     Dosage: 0.89 MG/KG (0.89 MG/KG, 1 IN 1 D), ORAL
     Route: 048
     Dates: start: 20030401, end: 20030501

REACTIONS (2)
  - DYSPNOEA [None]
  - PALPITATIONS [None]
